FAERS Safety Report 16177220 (Version 1)
Quarter: 2019Q2

REPORT INFORMATION
  Report Type: Report from Study
  Country: None (occurrence: US)
  Receive Date: 20190410
  Receipt Date: 20190410
  Transmission Date: 20190711
  Serious: Yes (Hospitalization, Other)
  Sender: FDA-Public Use
  Company Number: US-ABBVIE-19K-163-2693625-00

PATIENT
  Age: 39 Year
  Sex: Female
  Weight: 84.44 kg

DRUGS (14)
  1. HUMIRA [Suspect]
     Active Substance: ADALIMUMAB
     Route: 058
     Dates: end: 2018
  2. VITAMIN B COMPLEX [Concomitant]
     Active Substance: CYANOCOBALAMIN\DEXPANTHENOL\NIACINAMIDE\PYRIDOXINE HYDROCHLORIDE\RIBOFLAVIN 5^-PHOSPHATE SODIUM\THIAMINE HYDROCHLORIDE\VITAMIN B COMPLEX
     Indication: VITAMIN SUPPLEMENTATION
  3. HUMIRA [Suspect]
     Active Substance: ADALIMUMAB
     Indication: CROHN^S DISEASE
     Route: 058
     Dates: start: 2014
  4. CITALOPRAM [Concomitant]
     Active Substance: CITALOPRAM HYDROBROMIDE
     Indication: DEPRESSION
  5. ZYRTEC [Concomitant]
     Active Substance: CETIRIZINE HYDROCHLORIDE
     Indication: PRODUCT USED FOR UNKNOWN INDICATION
  6. HUMIRA [Suspect]
     Active Substance: ADALIMUMAB
     Route: 058
  7. IRON [Concomitant]
     Active Substance: IRON
     Indication: MINERAL SUPPLEMENTATION
  8. OMEPRAZOLE. [Concomitant]
     Active Substance: OMEPRAZOLE
     Indication: ANTACID THERAPY
  9. CITALOPRAM [Concomitant]
     Active Substance: CITALOPRAM HYDROBROMIDE
     Indication: ANXIETY
  10. BIOTIN [Concomitant]
     Active Substance: BIOTIN
     Indication: PRODUCT USED FOR UNKNOWN INDICATION
  11. CALCIUM [Concomitant]
     Active Substance: CALCIUM
     Indication: PRODUCT USED FOR UNKNOWN INDICATION
  12. SINGULAIR [Concomitant]
     Active Substance: MONTELUKAST SODIUM
     Indication: HYPERSENSITIVITY
  13. BENADRYL [Concomitant]
     Active Substance: DIPHENHYDRAMINE HYDROCHLORIDE
     Indication: HYPERSENSITIVITY
  14. VITAMIN D3 [Concomitant]
     Active Substance: CHOLECALCIFEROL
     Indication: PRODUCT USED FOR UNKNOWN INDICATION

REACTIONS (26)
  - Blood magnesium decreased [Recovered/Resolved]
  - Procedural pain [Recovering/Resolving]
  - Blood potassium decreased [Recovered/Resolved]
  - Uterine leiomyoma [Recovered/Resolved]
  - Menstrual disorder [Recovered/Resolved]
  - Postoperative abscess [Recovered/Resolved]
  - Diarrhoea [Recovering/Resolving]
  - Umbilical hernia [Recovering/Resolving]
  - Blood potassium decreased [Unknown]
  - Abdominal pain [Recovering/Resolving]
  - Neuralgia [Not Recovered/Not Resolved]
  - Pulmonary embolism [Recovering/Resolving]
  - Dehydration [Recovered/Resolved]
  - Feeling abnormal [Recovered/Resolved]
  - Endodontic procedure [Recovered/Resolved]
  - Back pain [Recovered/Resolved]
  - Fat intolerance [Not Recovered/Not Resolved]
  - Abdominal adhesions [Recovered/Resolved]
  - Gastrointestinal inflammation [Recovered/Resolved]
  - Abdominal pain [Not Recovered/Not Resolved]
  - Gastrointestinal disorder [Recovered/Resolved]
  - Gallbladder hypofunction [Recovered/Resolved]
  - Oesophageal food impaction [Recovering/Resolving]
  - Hypophagia [Recovered/Resolved]
  - Blood magnesium decreased [Unknown]
  - Cholelithiasis [Recovered/Resolved]

NARRATIVE: CASE EVENT DATE: 201608
